FAERS Safety Report 6568964-8 (Version None)
Quarter: 2010Q1

REPORT INFORMATION
  Report Type: 
  Country: None (occurrence: None)
  Receive Date: 20100203
  Receipt Date: 20100201
  Transmission Date: 20100710
  Serious: Yes (Hospitalization)
  Sender: FDA-Public Use
  Company Number: FR-WYE-G05472910

PATIENT
  Sex: Male

DRUGS (4)
  1. RHINADVIL [Suspect]
     Dosage: UNKNOWN
     Route: 048
     Dates: start: 20090214, end: 20090214
  2. EFFERALGAN [Suspect]
     Dosage: UNKNOWN
     Route: 048
     Dates: start: 20090214, end: 20090214
  3. PLAQUENIL [Suspect]
     Indication: CUTANEOUS LUPUS ERYTHEMATOSUS
     Route: 048
     Dates: start: 20090129, end: 20090215
  4. PLAQUENIL [Suspect]
     Route: 048
     Dates: start: 20090101

REACTIONS (5)
  - CHEILITIS [None]
  - ECZEMA [None]
  - IMMUNOLOGY TEST ABNORMAL [None]
  - RASH MACULO-PAPULAR [None]
  - RASH PRURITIC [None]
